FAERS Safety Report 15408729 (Version 2)
Quarter: 2024Q4

REPORT INFORMATION
  Report Type: Report from Study
  Country: IT (occurrence: IT)
  Receive Date: 20180920
  Receipt Date: 20241113
  Transmission Date: 20250114
  Serious: Yes (Hospitalization)
  Sender: TEVA
  Company Number: None

PATIENT
  Age: 1 Year
  Sex: Female
  Weight: 10 kg

DRUGS (1)
  1. BISOPROLOL FUMARATE [Suspect]
     Active Substance: BISOPROLOL FUMARATE
     Indication: Accidental exposure to product
     Dosage: TIME INTERVAL: TOTAL
     Route: 048
     Dates: start: 20180427, end: 20180427

REACTIONS (2)
  - Sinus tachycardia [Recovering/Resolving]
  - Accidental exposure to product [Recovering/Resolving]

NARRATIVE: CASE EVENT DATE: 20180427
